FAERS Safety Report 7781077-2 (Version None)
Quarter: 2011Q3

REPORT INFORMATION
  Report Type: 
  Country: None (occurrence: None)
  Receive Date: 20110923
  Receipt Date: 20110915
  Transmission Date: 20111222
  Serious: Yes (Hospitalization)
  Sender: FDA-Public Use
  Company Number: DAV-FUR-11-17

PATIENT
  Sex: Male

DRUGS (3)
  1. ACE INHIBITOR [Concomitant]
  2. SPIRONOLACTONE [Concomitant]
  3. FUROSEMIDE [Suspect]
     Indication: HYPERKALAEMIA

REACTIONS (5)
  - DYSPNOEA [None]
  - OEDEMA PERIPHERAL [None]
  - HYPOTENSION [None]
  - HYPERKALAEMIA [None]
  - RENAL IMPAIRMENT [None]
